FAERS Safety Report 7308991-6 (Version None)
Quarter: 2011Q1

REPORT INFORMATION
  Report Type: 
  Country: None (occurrence: None)
  Receive Date: 20110211
  Receipt Date: 20110114
  Transmission Date: 20110831
  Serious: Yes (Hospitalization, Other)
  Sender: FDA-Public Use
  Company Number: 2010SP026331

PATIENT
  Age: 31 Year
  Sex: Female
  Weight: 82.5547 kg

DRUGS (1)
  1. NUVARING [Suspect]
     Indication: CONTRACEPTION
     Dates: start: 20070531, end: 20080101

REACTIONS (26)
  - DEEP VEIN THROMBOSIS [None]
  - DYSPEPSIA [None]
  - GLUCOSE TOLERANCE IMPAIRED [None]
  - BIPOLAR DISORDER [None]
  - GLYCOSYLATED HAEMOGLOBIN INCREASED [None]
  - HEADACHE [None]
  - SNORING [None]
  - AFFECTIVE DISORDER [None]
  - MUSCULOSKELETAL CHEST PAIN [None]
  - FATIGUE [None]
  - SINUS TACHYCARDIA [None]
  - WEIGHT INCREASED [None]
  - COUGH [None]
  - POLLAKIURIA [None]
  - DIABETES MELLITUS [None]
  - CONTUSION [None]
  - MULTIPLE INJURIES [None]
  - INFARCTION [None]
  - JOINT SPRAIN [None]
  - BRONCHITIS [None]
  - PSYCHIATRIC SYMPTOM [None]
  - EMBOLISM VENOUS [None]
  - PULMONARY EMBOLISM [None]
  - GASTROOESOPHAGEAL REFLUX DISEASE [None]
  - DEPRESSION [None]
  - SEASONAL ALLERGY [None]
